FAERS Safety Report 5662526-2 (Version None)
Quarter: 2008Q1

REPORT INFORMATION
  Report Type: 
  Country: None (occurrence: None)
  Receive Date: 20080310
  Receipt Date: 20080310
  Transmission Date: 20080703
  Serious: No
  Sender: FDA-Public Use
  Company Number: None

PATIENT
  Age: 52 Year
  Sex: Male
  Weight: 95 kg

DRUGS (2)
  1. VALPROIC ACID [Suspect]
     Dosage: 2500 MG DAILY PO
     Route: 048
  2. HALOPERIDOL [Suspect]
     Dosage: 10 MG DAILY PO
     Route: 048

REACTIONS (3)
  - AMMONIA INCREASED [None]
  - FALL [None]
  - GAIT DISTURBANCE [None]
